FAERS Safety Report 7229056-8 (Version None)
Quarter: 2011Q1

REPORT INFORMATION
  Report Type: 
  Country: None (occurrence: None)
  Receive Date: 20110117
  Receipt Date: 20110112
  Transmission Date: 20110831
  Serious: Yes (Death)
  Sender: FDA-Public Use
  Company Number: PHHY2011FR02860

PATIENT
  Sex: Female

DRUGS (3)
  1. EQUANIL [Concomitant]
     Dosage: 1 DF, UNK
  2. EXELON [Suspect]
     Indication: DEMENTIA ALZHEIMER'S TYPE
     Dosage: UNK UKN, UNK
     Route: 048
     Dates: start: 20101201
  3. PAROXETINE HCL [Concomitant]
     Dosage: 1 DF, UNK

REACTIONS (1)
  - DEATH [None]
